FAERS Safety Report 15352516 (Version 1)
Quarter: 2018Q3

REPORT INFORMATION
  Report Type: Spontaneous
  Country: US (occurrence: US)
  Receive Date: 20180829
  Receipt Date: 20180829
  Transmission Date: 20181010
  Serious: Yes (Disabling)
  Sender: FDA-Public Use
  Company Number: None

PATIENT
  Age: 48 Year
  Sex: Female
  Weight: 112.5 kg

DRUGS (7)
  1. HYDROCHLOROTHIAZIDE. [Concomitant]
     Active Substance: HYDROCHLOROTHIAZIDE
  2. PARODONTAX [Suspect]
     Active Substance: STANNOUS FLUORIDE
     Indication: GINGIVAL BLEEDING
     Dosage: ?          QUANTITY:1 USE;OTHER ROUTE:APPLIED ON TOOTHBRUSH, BRUSHED TEETH?
     Dates: start: 20180601, end: 20180824
  3. METFORMIN [Concomitant]
     Active Substance: METFORMIN HYDROCHLORIDE
  4. FLAX SEED OIL CAPSULES [Concomitant]
  5. LANSOPRAZOLE. [Concomitant]
     Active Substance: LANSOPRAZOLE
  6. LOSARTAN. [Concomitant]
     Active Substance: LOSARTAN
  7. WOMEN^S MULTIVITAMIN [Concomitant]

REACTIONS (6)
  - Lip dry [None]
  - Toothache [None]
  - Gingival bleeding [None]
  - Rash pruritic [None]
  - Gingival pain [None]
  - Drug hypersensitivity [None]

NARRATIVE: CASE EVENT DATE: 20180726
